FAERS Safety Report 8866784 (Version 1)
Quarter: 2012Q4

REPORT INFORMATION
  Report Type: 
  Country: US (occurrence: US)
  Receive Date: 20121025
  Receipt Date: 20121025
  Transmission Date: 20130627
  Serious: No
  Sender: FDA-Public Use
  Company Number: US-AMGEN-USASP2012013319

PATIENT
  Age: 59 Year
  Sex: Male

DRUGS (2)
  1. ENBREL [Suspect]
     Indication: PRODUCT USED FOR UNKNOWN INDICATION
     Dosage: 50 mg, qwk
     Route: 058
  2. PREDNISONE [Concomitant]
     Dosage: 5 mg, UNK

REACTIONS (4)
  - Fatigue [Unknown]
  - Pain [Unknown]
  - Swelling [Unknown]
  - Drug ineffective [Unknown]
